FAERS Safety Report 5696100-9 (Version None)
Quarter: 2008Q2

REPORT INFORMATION
  Report Type: 
  Country: None (occurrence: None)
  Receive Date: 20080407
  Receipt Date: 20080327
  Transmission Date: 20081010
  Serious: Yes (Other)
  Sender: FDA-Public Use
  Company Number: JP-ROCHE-547231

PATIENT
  Sex: Female

DRUGS (2)
  1. HORIZON [Suspect]
     Indication: PREMEDICATION
     Route: 013
     Dates: start: 20080125, end: 20080125
  2. HORIZON [Suspect]
     Route: 013
     Dates: start: 20080131, end: 20080131

REACTIONS (3)
  - ERYTHEMA [None]
  - FEELING HOT [None]
  - MEDICATION ERROR [None]
